FAERS Safety Report 11146955 (Version 1)
Quarter: 2015Q2

REPORT INFORMATION
  Report Type: Spontaneous
  Country: US (occurrence: US)
  Receive Date: 20150528
  Receipt Date: 20150528
  Transmission Date: 20150821
  Serious: No
  Sender: FDA-Public Use
  Company Number: US-PURDUE-USA-2015-0120836

PATIENT
  Sex: Male

DRUGS (2)
  1. MS CONTIN [Suspect]
     Active Substance: MORPHINE SULFATE
     Indication: PAIN
     Dosage: 100 MG, TID
     Route: 048
  2. MS CONTIN [Suspect]
     Active Substance: MORPHINE SULFATE
     Dosage: 60 MG, TID
     Route: 048

REACTIONS (5)
  - Drug ineffective [Unknown]
  - Drug withdrawal syndrome [Unknown]
  - Product physical issue [Unknown]
  - Suspected counterfeit product [Unknown]
  - Product taste abnormal [Unknown]
